FAERS Safety Report 6454042-5 (Version None)
Quarter: 2009Q4

REPORT INFORMATION
  Report Type: 
  Country: None (occurrence: None)
  Receive Date: 20091124
  Receipt Date: 20091119
  Transmission Date: 20100525
  Serious: Yes (Death, Hospitalization)
  Sender: FDA-Public Use
  Company Number: A0824784A

PATIENT
  Sex: Female

DRUGS (3)
  1. FLIXOTIDE [Suspect]
     Indication: CHRONIC OBSTRUCTIVE PULMONARY DISEASE
     Dosage: 1PUFF PER DAY
     Route: 055
     Dates: start: 20090201, end: 20091111
  2. METHIMAZOLE [Concomitant]
     Dosage: 1TAB PER DAY
     Route: 048
     Dates: start: 20090101, end: 20091111
  3. UNSPECIFIED MEDICATION [Concomitant]
     Dosage: .5TAB TWO TIMES PER WEEK
     Dates: start: 20090101, end: 20091111

REACTIONS (3)
  - ENTERITIS INFECTIOUS [None]
  - PNEUMONIA [None]
  - RESPIRATORY FAILURE [None]
